FAERS Safety Report 9230442 (Version 2)
Quarter: 2013Q2

REPORT INFORMATION
  Report Type: Spontaneous
  Country: IT (occurrence: IT)
  Receive Date: 20130415
  Receipt Date: 20130508
  Transmission Date: 20140414
  Serious: Yes (Hospitalization)
  Sender: FDA-Public Use
  Company Number: IT-PFIZER INC-2013114133

PATIENT
  Age: 56 Year
  Sex: Female

DRUGS (6)
  1. CARBOPLATINO PFIZER ITALIA [Suspect]
     Indication: OVARIAN CANCER
     Dosage: 450 MG, CYCLIC
     Route: 042
     Dates: start: 20121110, end: 20130122
  2. PACLITAXEL SANDOZ [Suspect]
     Indication: OVARIAN CANCER
     Dosage: 185 MG, CYCLIC
     Route: 042
     Dates: start: 20121011, end: 20130122
  3. LASIX [Concomitant]
  4. GRANULOKINE [Concomitant]
  5. CLEXANE [Concomitant]
  6. DELTACORTENE [Concomitant]

REACTIONS (3)
  - Anaemia [Recovered/Resolved]
  - Leukopenia [Recovered/Resolved]
  - Pneumonia [Recovered/Resolved]
